FAERS Safety Report 21818797 (Version 1)
Quarter: 2023Q1

REPORT INFORMATION
  Report Type: Spontaneous
  Country: FR (occurrence: FR)
  Receive Date: 20230104
  Receipt Date: 20230104
  Transmission Date: 20230418
  Serious: Yes (Hospitalization)
  Sender: FDA-Public Use
  Company Number: None

PATIENT
  Age: 75 Year
  Sex: Male
  Weight: 88 kg

DRUGS (3)
  1. AMIKACIN [Suspect]
     Active Substance: AMIKACIN
     Indication: Sepsis
     Dosage: 2500 MILLIGRAM, QD
     Route: 042
     Dates: start: 20220808, end: 20220808
  2. FUROSEMIDE [Suspect]
     Active Substance: FUROSEMIDE
     Indication: Oedema
     Dosage: 40 MILLIGRAM, QD
     Route: 048
     Dates: start: 20220811, end: 20220815
  3. IOMERON [Suspect]
     Active Substance: IOMEPROL
     Indication: Computerised tomogram
     Dosage: 1 DOSAGE FORM, QD
     Route: 042
     Dates: start: 20220808, end: 20220808

REACTIONS (1)
  - Acute kidney injury [Not Recovered/Not Resolved]

NARRATIVE: CASE EVENT DATE: 20220815
